FAERS Safety Report 7895806-0 (Version None)
Quarter: 2011Q4

REPORT INFORMATION
  Report Type: 
  Country: None (occurrence: None)
  Receive Date: 20111106
  Receipt Date: 20110831
  Transmission Date: 20120403
  Serious: No
  Sender: FDA-Public Use
  Company Number: US-AMGEN-USASP2011037591

PATIENT
  Age: 58 Year
  Sex: Male

DRUGS (19)
  1. GLIMEPIRIDE [Concomitant]
     Dosage: 1 MG, UNK
  2. CARVEDILOL [Concomitant]
     Dosage: 12.5 MG, UNK
  3. ENBREL [Suspect]
     Indication: PRODUCT USED FOR UNKNOWN INDICATION
     Dosage: 50 MG, QWK
     Route: 058
     Dates: start: 20110625
  4. SIMVASTATIN [Concomitant]
     Dosage: 10 MG, UNK
  5. HYDROCODONE BITARTRATE [Concomitant]
     Dosage: UNK
  6. LEXAPRO [Concomitant]
     Dosage: 5 MG, UNK
  7. ASPIRIN [Concomitant]
     Dosage: 81 MG, UNK
  8. COLCHICINE [Concomitant]
     Dosage: 0.6 MG, UNK
  9. ALLOPURINOL [Concomitant]
     Dosage: 100 MG, UNK
  10. DIGOXIN [Concomitant]
     Dosage: 0.125 MG, UNK
  11. FUROSEMIDE [Concomitant]
     Dosage: 20 MG, UNK
  12. KLOR-CON [Concomitant]
     Dosage: 10 MEQ, UNK
  13. NOVOLOG [Concomitant]
     Dosage: 100 ML, UNK
  14. METHOTREXATE [Concomitant]
     Dosage: 2.5 MG, UNK
  15. LEVEMIR [Concomitant]
  16. FERREX FORTE [Concomitant]
     Dosage: 150 MG, UNK
  17. VITAMIN D [Concomitant]
     Dosage: UNK UNIT, UNK
  18. FOLIC ACID [Concomitant]
     Dosage: 1 MG, UNK
  19. VITAMIN B1 TAB [Concomitant]
     Dosage: 100 MG, UNK

REACTIONS (3)
  - INFLUENZA LIKE ILLNESS [None]
  - SEASONAL ALLERGY [None]
  - PYREXIA [None]
